FAERS Safety Report 12970690 (Version 1)
Quarter: 2016Q4

REPORT INFORMATION
  Report Type: Spontaneous
  Country: JP (occurrence: JP)
  Receive Date: 20161123
  Receipt Date: 20161123
  Transmission Date: 20170207
  Serious: Yes (Other)
  Sender: FDA-Public Use
  Company Number: JP-SA-2016SA213018

PATIENT
  Age: 47 Year
  Sex: Male

DRUGS (3)
  1. ECARD [Concomitant]
     Active Substance: CANDESARTAN CILEXETIL\HYDROCHLOROTHIAZIDE
     Indication: HYPERTENSION
     Route: 048
  2. PABRON [Concomitant]
     Indication: NASOPHARYNGITIS
     Route: 048
     Dates: start: 201611
  3. DELLEGRA [Suspect]
     Active Substance: FEXOFENADINE HYDROCHLORIDE\PSEUDOEPHEDRINE HYDROCHLORIDE
     Indication: RHINITIS ALLERGIC
     Route: 048
     Dates: start: 201602, end: 20161118

REACTIONS (3)
  - Feeling abnormal [Unknown]
  - Pallor [Unknown]
  - Hypotension [Unknown]

NARRATIVE: CASE EVENT DATE: 20161118
